FAERS Safety Report 18356017 (Version 1)
Quarter: 2020Q4

REPORT INFORMATION
  Report Type: Spontaneous
  Country: US (occurrence: US)
  Receive Date: 20201007
  Receipt Date: 20201007
  Transmission Date: 20210114
  Serious: Yes (Death, Other)
  Sender: FDA-Public Use
  Company Number: US-PURDUE-USA-2020-0168973

PATIENT
  Sex: Male

DRUGS (3)
  1. OXYCONTIN [Suspect]
     Active Substance: OXYCODONE HYDROCHLORIDE
     Indication: NEURALGIA
     Dosage: UNK
     Route: 048
  2. DHC PLUS [Suspect]
     Active Substance: ACETAMINOPHEN\CAFFEINE\DIHYDROCODEINE BITARTRATE
     Indication: NEURALGIA
     Dosage: UNK
     Route: 065
  3. TRAMADOL. [Suspect]
     Active Substance: TRAMADOL
     Indication: NEURALGIA
     Dosage: UNK
     Route: 065

REACTIONS (4)
  - Cardiac disorder [Fatal]
  - Drug dependence [Unknown]
  - Drug abuse [Unknown]
  - Unevaluable event [Unknown]
